FAERS Safety Report 12634283 (Version 2)
Quarter: 2016Q3

REPORT INFORMATION
  Report Type: Report from Study
  Country: US (occurrence: US)
  Receive Date: 20160809
  Receipt Date: 20160916
  Transmission Date: 20161109
  Serious: Yes (Death, Hospitalization, Other)
  Sender: FDA-Public Use
  Company Number: US-ALEXION PHARMACEUTICALS INC-A201605707

PATIENT
  Age: 65 Year
  Sex: Male

DRUGS (9)
  1. SOLIRIS [Suspect]
     Active Substance: ECULIZUMAB
     Indication: PAROXYSMAL NOCTURNAL HAEMOGLOBINURIA
     Dosage: UNK
     Route: 042
  2. ATG                                /00575401/ [Suspect]
     Active Substance: LAPINE T-LYMPHOCYTE IMMUNE GLOBULIN
     Dosage: 1 MG/KG, UNK
     Route: 042
     Dates: start: 20160703, end: 20160703
  3. ISAVUCONAZOLE [Suspect]
     Active Substance: ISAVUCONAZOLE
     Indication: PRODUCT USED FOR UNKNOWN INDICATION
     Dosage: UNK
     Route: 065
  4. ATG                                /00575401/ [Suspect]
     Active Substance: LAPINE T-LYMPHOCYTE IMMUNE GLOBULIN
     Indication: CHEMOTHERAPY
     Dosage: 0.5 MG/KG,
     Route: 042
     Dates: start: 20160702, end: 20160702
  5. MESNA. [Concomitant]
     Active Substance: MESNA
     Indication: CHEMOTHERAPY
     Dosage: 720 MG/M2, UNK
     Route: 065
     Dates: start: 20160702, end: 20160705
  6. ATG                                /00575401/ [Suspect]
     Active Substance: LAPINE T-LYMPHOCYTE IMMUNE GLOBULIN
     Dosage: 2 MG/KG, UNK
     Route: 042
     Dates: start: 20160704, end: 20160704
  7. ATG                                /00575401/ [Suspect]
     Active Substance: LAPINE T-LYMPHOCYTE IMMUNE GLOBULIN
     Dosage: 2.5 MG/KG, UNK
     Route: 042
     Dates: start: 20160705
  8. CYTOXAN [Concomitant]
     Active Substance: CYCLOPHOSPHAMIDE
     Indication: CHEMOTHERAPY
     Dosage: 600 MG/M2, QD
     Route: 042
  9. FLUDARABINE [Concomitant]
     Active Substance: FLUDARABINE PHOSPHATE
     Indication: CHEMOTHERAPY
     Dosage: 30 MG/M2, QD
     Route: 042
     Dates: start: 20160701, end: 20160705

REACTIONS (47)
  - Oral herpes [Unknown]
  - Atrial thrombosis [Unknown]
  - Splenic infarction [Unknown]
  - Thrombocytopenia [Unknown]
  - Blood pressure abnormal [Unknown]
  - Atrial hypertrophy [Unknown]
  - Aphasia [Unknown]
  - Atrial fibrillation [Unknown]
  - Scedosporium infection [Unknown]
  - Neutropenia [Unknown]
  - Crepitations [Unknown]
  - Pyrexia [Unknown]
  - Headache [Unknown]
  - Subarachnoid haemorrhage [Fatal]
  - Huntington^s disease [Unknown]
  - Pulmonary embolism [Unknown]
  - Hypovolaemia [Unknown]
  - Pleural effusion [Unknown]
  - Condition aggravated [Unknown]
  - Atrioventricular block first degree [Unknown]
  - Fluid overload [Unknown]
  - Fungal infection [Unknown]
  - Pneumonia fungal [Unknown]
  - Haemorrhagic stroke [Unknown]
  - Condition aggravated [Unknown]
  - Condition aggravated [Unknown]
  - Pulmonary arterial pressure abnormal [Unknown]
  - Diverticulum intestinal [Unknown]
  - Aplastic anaemia [Unknown]
  - Hypertrophic cardiomyopathy [Unknown]
  - Hypothermia [Recovered/Resolved]
  - Hypoxia [Unknown]
  - Venous pressure jugular increased [Unknown]
  - Depressed level of consciousness [Unknown]
  - Thrombosis [Unknown]
  - Renal infarct [Unknown]
  - Local swelling [Unknown]
  - Cardiac septal hypertrophy [Unknown]
  - Fungaemia [Unknown]
  - Pulmonary mass [Unknown]
  - Deep vein thrombosis [Unknown]
  - Cerebral haemorrhage [Unknown]
  - Muscle twitching [Unknown]
  - Coagulopathy [Unknown]
  - Aphasia [Unknown]
  - Cerebral haematoma [Unknown]
  - Vasogenic cerebral oedema [Unknown]

NARRATIVE: CASE EVENT DATE: 20160707
